FAERS Safety Report 7631226-1 (Version None)
Quarter: 2011Q3

REPORT INFORMATION
  Report Type: 
  Country: None (occurrence: None)
  Receive Date: 20110725
  Receipt Date: 20110715
  Transmission Date: 20111222
  Serious: Yes (Other)
  Sender: FDA-Public Use
  Company Number: US-JNJFOC-20110708135

PATIENT
  Sex: Male
  Weight: 77.11 kg

DRUGS (3)
  1. ATENOLOL [Concomitant]
     Indication: BLOOD PRESSURE
     Route: 048
  2. PANCREAZE [Suspect]
     Indication: PANCREATITIS
     Dosage: 16,800MG/8 CAPSULES WITH A MEAL
     Route: 048
     Dates: start: 20060101, end: 20100101
  3. GEMFIBROZIL [Concomitant]
     Indication: BLOOD CHOLESTEROL
     Route: 048

REACTIONS (1)
  - CEREBROVASCULAR ACCIDENT [None]
